FAERS Safety Report 8619676-8 (Version None)
Quarter: 2012Q3

REPORT INFORMATION
  Report Type: 
  Country: None (occurrence: None)
  Receive Date: 20120824
  Receipt Date: 20120821
  Transmission Date: 20120928
  Serious: Yes (Hospitalization)
  Sender: FDA-Public Use
  Company Number: US-PFIZER INC-2012205733

PATIENT
  Sex: Male

DRUGS (1)
  1. ARTHROTEC [Suspect]

REACTIONS (2)
  - PNEUMOTHORAX [None]
  - PNEUMONIA [None]
